FAERS Safety Report 5642858-4 (Version None)
Quarter: 2008Q1

REPORT INFORMATION
  Report Type: 
  Country: None (occurrence: None)
  Receive Date: 20080228
  Receipt Date: 20080214
  Transmission Date: 20080703
  Serious: Yes (Hospitalization)
  Sender: FDA-Public Use
  Company Number: ES-RANBAXY-2008RR-13127

PATIENT

DRUGS (1)
  1. ENALAPRIL RANBAXY 5MG COMPRIMIDOS EFG [Suspect]
     Indication: HYPERTENSION

REACTIONS (1)
  - HEPATITIS CHOLESTATIC [None]
